FAERS Safety Report 4753615-5 (Version None)
Quarter: 2005Q3

REPORT INFORMATION
  Report Type: 
  Country: None (occurrence: None)
  Receive Date: 20050826
  Receipt Date: 20050315
  Transmission Date: 20060218
  Serious: No
  Sender: FDA-Public Use
  Company Number: US-GLAXOSMITHKLINE-A0549888A

PATIENT
  Age: 60 Year
  Sex: Male

DRUGS (3)
  1. BECONASE [Suspect]
     Indication: DRUG USE FOR UNKNOWN INDICATION
     Dosage: 2PUFF TWICE PER DAY
     Route: 045
  2. CLARITIN [Concomitant]
  3. NASALCROM [Concomitant]

REACTIONS (1)
  - NASAL CONGESTION [None]
